FAERS Safety Report 7833667-6 (Version None)
Quarter: 2011Q4

REPORT INFORMATION
  Report Type: 
  Country: None (occurrence: None)
  Receive Date: 20111024
  Receipt Date: 20111011
  Transmission Date: 20120403
  Serious: Yes (Other)
  Sender: FDA-Public Use
  Company Number: FR-SANOFI-AVENTIS-2011SA067417

PATIENT
  Age: 65 Year
  Sex: Female

DRUGS (3)
  1. PREVISCAN [Interacting]
     Route: 048
     Dates: start: 20110101
  2. MULTAQ [Suspect]
     Indication: ATRIAL FIBRILLATION
     Route: 048
     Dates: start: 20110115
  3. PREVISCAN [Interacting]
     Indication: ATRIAL FIBRILLATION
     Route: 048
     Dates: start: 20060101, end: 20110101

REACTIONS (3)
  - DRUG INTERACTION [None]
  - ATRIAL FIBRILLATION [None]
  - INTERNATIONAL NORMALISED RATIO DECREASED [None]
